FAERS Safety Report 7605079-1 (Version None)
Quarter: 2011Q3

REPORT INFORMATION
  Report Type: 
  Country: None (occurrence: None)
  Receive Date: 20110713
  Receipt Date: 20091029
  Transmission Date: 20111222
  Serious: Yes (Hospitalization, Other)
  Sender: FDA-Public Use
  Company Number: US-BAYER-200937405NA

PATIENT
  Age: 52 Year
  Sex: Female
  Weight: 87.075 kg

DRUGS (21)
  1. TRASYLOL [Suspect]
     Indication: MITRAL VALVE REPLACEMENT
     Dosage: 200 ML, LOADING DOSE
     Route: 042
     Dates: start: 20050907, end: 20050907
  2. TOPROL-XL [Concomitant]
     Indication: PRODUCT USED FOR UNKNOWN INDICATION
     Dosage: 50 MG, UNK
     Route: 048
  3. MACROBID [Concomitant]
     Indication: PRODUCT USED FOR UNKNOWN INDICATION
     Dosage: 200 MG, UNK
     Route: 048
  4. MIDAZOLAM HCL [Concomitant]
     Dosage: 20 MG, UNK
     Route: 042
     Dates: start: 20050907
  5. HUMULIN I [Concomitant]
     Dosage: 5 U, UNK
     Route: 042
     Dates: start: 20050907
  6. TRICOR [Concomitant]
     Indication: PRODUCT USED FOR UNKNOWN INDICATION
     Dosage: 145 MG, UNK
     Route: 048
  7. IMDUR [Concomitant]
     Indication: PRODUCT USED FOR UNKNOWN INDICATION
     Dosage: 30 MG, UNK
     Route: 048
  8. PREVACID [Concomitant]
     Indication: PRODUCT USED FOR UNKNOWN INDICATION
     Dosage: 30 MG, UNK
     Route: 048
  9. RED BLOOD CELLS [Concomitant]
     Dosage: 1 U, UNK
     Route: 042
     Dates: start: 20050907
  10. TRASYLOL [Suspect]
     Indication: CORONARY ARTERY BYPASS
     Dosage: 1 ML, TEST DOSE
     Route: 042
     Dates: start: 20050907, end: 20050907
  11. TRASYLOL [Suspect]
     Dosage: 50 ML/HR, INFUSION DOSE.
     Route: 042
     Dates: start: 20050907, end: 20050907
  12. LIPITOR [Concomitant]
     Indication: PRODUCT USED FOR UNKNOWN INDICATION
     Dosage: 40 MG, UNK
     Route: 048
  13. EFFEXOR [Concomitant]
     Indication: PRODUCT USED FOR UNKNOWN INDICATION
     Dosage: 75 MG, UNK
     Route: 048
  14. PERSANTINE [Concomitant]
     Dosage: 75 MG, UNK
     Route: 048
  15. PROTAMINE SULFATE [Concomitant]
     Dosage: 250-350 MG
     Route: 042
     Dates: start: 20050907
  16. ASPIRIN [Concomitant]
     Indication: PRODUCT USED FOR UNKNOWN INDICATION
     Dosage: 325 MG, UNK
     Route: 048
  17. TEMAZEPAM [Concomitant]
     Indication: PRODUCT USED FOR UNKNOWN INDICATION
     Dosage: 30 MG, UNK
     Route: 048
  18. ALLOPURINOL [Concomitant]
     Dosage: 100 MG, UNK
     Route: 048
  19. REGLAN [Concomitant]
     Indication: PRODUCT USED FOR UNKNOWN INDICATION
     Dosage: 10 MG, UNK
     Route: 048
  20. LASIX [Concomitant]
     Indication: PRODUCT USED FOR UNKNOWN INDICATION
     Dosage: 20 MG, UNK
     Route: 048
  21. HEPARIN [Concomitant]
     Dosage: 1000-10000 UNITS
     Route: 042
     Dates: start: 20050907

REACTIONS (6)
  - UNEVALUABLE EVENT [None]
  - INJURY [None]
  - MENTAL DISORDER [None]
  - PAIN [None]
  - DEPRESSION [None]
  - RENAL FAILURE [None]
